APPROVED DRUG PRODUCT: TOLSURA
Active Ingredient: ITRACONAZOLE
Strength: 65MG
Dosage Form/Route: CAPSULE;ORAL
Application: N208901 | Product #001
Applicant: MAYNE PHARMA INTERNATIONAL PTY LTD
Approved: Dec 11, 2018 | RLD: Yes | RS: Yes | Type: RX

PATENTS:
Patent 10463740 | Expires: Jun 21, 2033
Patent 9713642 | Expires: Jun 21, 2033
Patent 10806792 | Expires: Jun 21, 2033
Patent 8921374 | Expires: Jun 21, 2033
Patent 9272046 | Expires: Jun 21, 2033